FAERS Safety Report 5057443-5 (Version None)
Quarter: 2006Q3

REPORT INFORMATION
  Report Type: 
  Country: None (occurrence: None)
  Receive Date: 20060721
  Receipt Date: 20051003
  Transmission Date: 20061208
  Serious: No
  Sender: FDA-Public Use
  Company Number: US-GLAXOSMITHKLINE-A0576729A

PATIENT
  Age: 72 Year
  Sex: Male

DRUGS (14)
  1. AVANDIA [Suspect]
     Dosage: 4MG TWICE PER DAY
     Route: 048
  2. FUROSEMIDE [Concomitant]
  3. FLONASE [Concomitant]
  4. COREG [Concomitant]
  5. FLUDROCORTISONE [Concomitant]
  6. IMDUR [Concomitant]
  7. GLUCOTROL XL [Concomitant]
  8. AVAPRO [Concomitant]
  9. NITROGLYCERIN [Concomitant]
  10. MEXITIL [Concomitant]
  11. ZOCOR [Concomitant]
  12. PERCOCET [Concomitant]
  13. NEURONTIN [Concomitant]
  14. FLOVENT [Concomitant]

REACTIONS (1)
  - BLOOD GLUCOSE DECREASED [None]
